FAERS Safety Report 5914544-4 (Version None)
Quarter: 2008Q4

REPORT INFORMATION
  Report Type: 
  Country: None (occurrence: None)
  Receive Date: 20081008
  Receipt Date: 20081001
  Transmission Date: 20090506
  Serious: Yes (Other)
  Sender: FDA-Public Use
  Company Number: CLOF-1000306

PATIENT
  Age: 68 Year

DRUGS (2)
  1. CLOLAR [Suspect]
     Indication: ACUTE LEUKAEMIA
     Dates: start: 20080915
  2. DAUNORUBICIN HCL [Suspect]
     Indication: ACUTE LEUKAEMIA

REACTIONS (6)
  - BLOOD CREATINE INCREASED [None]
  - BLOOD POTASSIUM DECREASED [None]
  - BLOOD UREA INCREASED [None]
  - C-REACTIVE PROTEIN INCREASED [None]
  - DIABETES INSIPIDUS [None]
  - HYPERNATRAEMIA [None]
